FAERS Safety Report 4684513-3 (Version None)
Quarter: 2005Q2

REPORT INFORMATION
  Report Type: 
  Country: None (occurrence: None)
  Receive Date: 20050531
  Receipt Date: 20050311
  Transmission Date: 20051028
  Serious: Yes (Hospitalization, Other)
  Sender: FDA-Public Use
  Company Number: US_0409105266

PATIENT
  Age: 38 Year
  Sex: Female
  Weight: 109 kg

DRUGS (32)
  1. ZYPREXA [Suspect]
     Indication: PANIC ATTACK
     Dosage: 10 MG AS NEEDED
     Dates: start: 20011008, end: 20031008
  2. ZYPREXA [Suspect]
     Dosage: 5 MG/3 DAY
     Dates: start: 20020525, end: 20030826
  3. EFFEXOR [Concomitant]
  4. KLONOPIN [Concomitant]
  5. TEGRETOL (CARBAMAZEPINE RIVOPHARM) [Concomitant]
  6. WELLBUTRIN SR [Concomitant]
  7. AMBIEN [Concomitant]
  8. LEXAPRO [Concomitant]
  9. GABITRIL [Concomitant]
  10. SEROQUEL [Concomitant]
  11. REMERON (MIRTAZAPINE ORIFARM) [Concomitant]
  12. HALDOL (HALOPERIDOL DECANOATE) [Concomitant]
  13. CELEBREX [Concomitant]
  14. SONATA [Concomitant]
  15. CLARITIN [Concomitant]
  16. ZYRTEC [Concomitant]
  17. TENORMIN (ATENOLOL EG) [Concomitant]
  18. THIAMINE [Concomitant]
  19. BUSPIRONE HCL [Concomitant]
  20. GEODON [Concomitant]
  21. TRANXENE [Concomitant]
  22. DARVOCET-N 100 [Concomitant]
  23. SYNTHROID [Concomitant]
  24. ULTRACET [Concomitant]
  25. AMITRIPTYLINE [Concomitant]
  26. LORTAB [Concomitant]
  27. CHROMAGEN [Concomitant]
  28. DOXYCYCLINE [Concomitant]
  29. TABRON [Concomitant]
  30. DOCUSATE [Concomitant]
  31. ATIVAN [Concomitant]
  32. PAXIL [Concomitant]

REACTIONS (42)
  - ABDOMINAL PAIN UPPER [None]
  - APATHY [None]
  - ASTHENIA [None]
  - AUTONOMIC NERVOUS SYSTEM IMBALANCE [None]
  - BACK PAIN [None]
  - BLOOD CHOLESTEROL INCREASED [None]
  - BLOOD GLUCOSE INCREASED [None]
  - BRONCHITIS [None]
  - CONVULSION [None]
  - DIABETES MELLITUS [None]
  - DIARRHOEA [None]
  - DISTURBANCE IN ATTENTION [None]
  - DIZZINESS [None]
  - DRUG INEFFECTIVE [None]
  - DRUG INTERACTION [None]
  - DYSPHORIA [None]
  - DYSPNOEA [None]
  - FATIGUE [None]
  - FEAR [None]
  - FEELING OF DESPAIR [None]
  - GASTROENTERITIS VIRAL [None]
  - HEADACHE [None]
  - HYPERLIPIDAEMIA [None]
  - HYPERTENSION [None]
  - INCREASED APPETITE [None]
  - INITIAL INSOMNIA [None]
  - INSOMNIA [None]
  - INTENTIONAL MISUSE [None]
  - IRRITABILITY [None]
  - LETHARGY [None]
  - NEUROPATHY PERIPHERAL [None]
  - PANIC DISORDER [None]
  - POLYDIPSIA [None]
  - RESTLESSNESS [None]
  - RHINITIS [None]
  - SOCIAL AVOIDANT BEHAVIOUR [None]
  - SOMNOLENCE [None]
  - TEARFULNESS [None]
  - TREMOR [None]
  - UTERINE CYST [None]
  - VISION BLURRED [None]
  - WEIGHT INCREASED [None]
